FAERS Safety Report 9456286 (Version 1)
Quarter: 2013Q3

REPORT INFORMATION
  Report Type: Spontaneous
  Country: GB (occurrence: GB)
  Receive Date: 20130813
  Receipt Date: 20130813
  Transmission Date: 20140515
  Serious: Yes (Hospitalization, Disabling, Other)
  Sender: FDA-Public Use
  Company Number: GB-WATSON-2013-14142

PATIENT
  Sex: 0

DRUGS (1)
  1. PRAMIPEXOLE DIHYDROCHLORIDE (UNKNOWN) [Suspect]
     Indication: RESTLESS LEGS SYNDROME
     Dosage: 180 MICROGRAM(S), DAILY
     Route: 048
     Dates: start: 2013, end: 20130704

REACTIONS (6)
  - Liver function test abnormal [Unknown]
  - Jaundice [Unknown]
  - Lethargy [Unknown]
  - Chromaturia [Unknown]
  - Cholelithiasis [Unknown]
  - Chronic hepatitis [Unknown]
